FAERS Safety Report 25366644 (Version 1)
Quarter: 2025Q2

REPORT INFORMATION
  Report Type: Spontaneous
  Country: US (occurrence: US)
  Receive Date: 20250528
  Receipt Date: 20250528
  Transmission Date: 20250716
  Serious: Yes (Other)
  Sender: AUROBINDO
  Company Number: US-AUROBINDO-AUR-APL-2025-026377

PATIENT
  Age: 22 Year
  Sex: Female

DRUGS (3)
  1. MEDROXYPROGESTERONE [Suspect]
     Active Substance: MEDROXYPROGESTERONE
     Indication: Uterine haemorrhage
     Route: 065
  2. TRANEXAMIC ACID [Suspect]
     Active Substance: TRANEXAMIC ACID
     Indication: Uterine haemorrhage
     Route: 065
  3. MISOPROSTOL [Suspect]
     Active Substance: MISOPROSTOL
     Indication: Uterine haemorrhage
     Route: 065

REACTIONS (1)
  - Drug ineffective [Unknown]
